FAERS Safety Report 9460238 (Version 1)
Quarter: 2013Q3

REPORT INFORMATION
  Report Type: Spontaneous
  Country: FR (occurrence: FR)
  Receive Date: 20130815
  Receipt Date: 20130815
  Transmission Date: 20140515
  Serious: Yes (Hospitalization)
  Sender: FDA-Public Use
  Company Number: FR-AMGEN-FRASP2013056009

PATIENT
  Age: 77 Year
  Sex: Female
  Weight: 84 kg

DRUGS (2)
  1. XGEVA [Suspect]
     Indication: BREAST CANCER METASTATIC
     Dosage: 120 MG, Q4WK
     Route: 058
     Dates: start: 20130214, end: 20130725
  2. XGEVA [Suspect]
     Indication: METASTASES TO BONE

REACTIONS (1)
  - Gingival pain [Unknown]
